FAERS Safety Report 21094145 (Version 1)
Quarter: 2022Q3

REPORT INFORMATION
  Report Type: Spontaneous
  Country: US (occurrence: US)
  Receive Date: 20220718
  Receipt Date: 20220718
  Transmission Date: 20221026
  Serious: No
  Sender: FDA-Public Use
  Company Number: US-PFIZER INC-202200957492

PATIENT
  Age: 39 Year
  Sex: Female

DRUGS (1)
  1. PAXLOVID [Suspect]
     Active Substance: NIRMATRELVIR\RITONAVIR
     Indication: COVID-19 treatment
     Dosage: UNK
     Route: 048
     Dates: start: 20220629, end: 20220705

REACTIONS (5)
  - Upper respiratory tract infection [Unknown]
  - Pyrexia [Unknown]
  - Respiratory tract congestion [Unknown]
  - Dyspnoea exertional [Unknown]
  - Product use issue [Unknown]

NARRATIVE: CASE EVENT DATE: 20220705
